FAERS Safety Report 8646204 (Version 2)
Quarter: 2014Q2

REPORT INFORMATION
  Report Type: Spontaneous
  Country: CH (occurrence: CH)
  Receive Date: 20120702
  Receipt Date: 20140415
  Transmission Date: 20141212
  Serious: Yes (Hospitalization)
  Sender: FDA-Public Use
  Company Number: CH-BAYER-2012-061611

PATIENT
  Age: 95 Year
  Sex: Female
  Weight: 55 kg

DRUGS (7)
  1. XARELTO [Suspect]
     Indication: THROMBOSIS PROPHYLAXIS
  2. XARELTO [Interacting]
     Indication: BONE OPERATION
     Dosage: DAILY DOSE 10 MG
     Route: 048
     Dates: start: 20120326, end: 20120402
  3. CLEXANE [Suspect]
     Indication: PROPHYLAXIS
  4. CLEXANE [Suspect]
     Indication: PROPHYLAXIS
     Dosage: DAILY DOSE 60 MG
     Route: 058
     Dates: start: 20120403, end: 20120412
  5. ASPIRIN CARDIO [Interacting]
  6. ASPIRIN CARDIO [Interacting]
     Dosage: DAILY DOSE 100 MG
     Route: 048
     Dates: end: 2012
  7. PARACETAMOL [Concomitant]
     Dosage: UNK
     Route: 048

REACTIONS (3)
  - Anaemia [Recovering/Resolving]
  - Confusional state [Unknown]
  - Medication error [Recovered/Resolved]
